FAERS Safety Report 7916084-X (Version None)
Quarter: 2011Q4

REPORT INFORMATION
  Report Type: 
  Country: None (occurrence: None)
  Receive Date: 20111116
  Receipt Date: 20111103
  Transmission Date: 20120403
  Serious: Yes (Other)
  Sender: FDA-Public Use
  Company Number: DE-ROCHE-1006827

PATIENT
  Sex: Male
  Weight: 10 kg

DRUGS (1)
  1. CLONAZEPAM [Suspect]
     Indication: STATUS EPILEPTICUS
     Route: 042

REACTIONS (1)
  - DEATH [None]
